APPROVED DRUG PRODUCT: NIACIN
Active Ingredient: NIACIN
Strength: 500MG
Dosage Form/Route: TABLET;ORAL
Application: A081134 | Product #001
Applicant: WOCKHARDT LTD
Approved: Apr 28, 1992 | RLD: No | RS: No | Type: DISCN